FAERS Safety Report 7528405-0 (Version None)
Quarter: 2011Q2

REPORT INFORMATION
  Report Type: 
  Country: None (occurrence: None)
  Receive Date: 20110607
  Receipt Date: 20110307
  Transmission Date: 20111010
  Serious: No
  Sender: FDA-Public Use
  Company Number: US-ASTRAZENECA-2011SE20836

PATIENT
  Age: 77 Year
  Sex: Female

DRUGS (4)
  1. PRILOSEC OTC [Suspect]
     Indication: ERUCTATION
     Route: 048
     Dates: start: 20110201, end: 20110301
  2. PROPRANOLOL [Concomitant]
     Dosage: UNKNOWN
  3. DIAZEPAM [Interacting]
     Dosage: UNKNOWN
  4. NORVASC [Concomitant]
     Dosage: UNKNOWN

REACTIONS (3)
  - LABELLED DRUG-DRUG INTERACTION MEDICATION ERROR [None]
  - INCORRECT DRUG ADMINISTRATION DURATION [None]
  - FLATULENCE [None]
